FAERS Safety Report 10159823 (Version 1)
Quarter: 2014Q2

REPORT INFORMATION
  Report Type: Spontaneous
  Country: US (occurrence: US)
  Receive Date: 20140508
  Receipt Date: 20140508
  Transmission Date: 20141212
  Serious: No
  Sender: FDA-Public Use
  Company Number: US-GLAXOSMITHKLINE-A1033621A

PATIENT
  Age: 51 Year
  Sex: Female
  Weight: 50.9 kg

DRUGS (6)
  1. TYKERB [Suspect]
     Indication: PRODUCT USED FOR UNKNOWN INDICATION
     Dosage: 1250MG PER DAY
     Route: 048
  2. XELODA [Suspect]
     Indication: PRODUCT USED FOR UNKNOWN INDICATION
     Dosage: 500MG UNKNOWN
     Route: 065
  3. KADCYLA [Suspect]
     Indication: PRODUCT USED FOR UNKNOWN INDICATION
     Dosage: 160MG UNKNOWN
     Route: 065
  4. XANAX [Concomitant]
     Dosage: 2MG UNKNOWN
     Route: 065
  5. OXYCODONE [Concomitant]
     Dosage: 5MG UNKNOWN
     Route: 065
  6. MORPHINE EXTENDED RELIEF [Concomitant]
     Dosage: 30MG UNKNOWN
     Route: 065

REACTIONS (6)
  - Diarrhoea [Unknown]
  - Weight decreased [Not Recovered/Not Resolved]
  - Dry eye [Unknown]
  - Dry mouth [Unknown]
  - Dry skin [Unknown]
  - Nail discolouration [Unknown]
